FAERS Safety Report 25852497 (Version 2)
Quarter: 2025Q4

REPORT INFORMATION
  Report Type: Spontaneous
  Country: US (occurrence: US)
  Receive Date: 20250926
  Receipt Date: 20251015
  Transmission Date: 20260117
  Serious: Yes (Other)
  Sender: NOVO NORDISK
  Company Number: US-NOVOPROD-1526847

PATIENT
  Age: 62 Year
  Sex: Female

DRUGS (4)
  1. WEGOVY [Suspect]
     Active Substance: SEMAGLUTIDE
     Indication: Weight decreased
     Dosage: 0.25 MG
     Dates: start: 2022
  2. WEGOVY [Suspect]
     Active Substance: SEMAGLUTIDE
     Dosage: 2.4 MG
     Dates: start: 20250921
  3. WEGOVY [Suspect]
     Active Substance: SEMAGLUTIDE
     Dosage: RESTARTED WITH 1.7MG
     Dates: start: 202508
  4. WEGOVY [Suspect]
     Active Substance: SEMAGLUTIDE
     Dosage: 1.7 MG
     Dates: end: 202507

REACTIONS (4)
  - Biliary colic [Not Recovered/Not Resolved]
  - Weight increased [Not Recovered/Not Resolved]
  - Eating disorder [Unknown]
  - Drug effect less than expected [Unknown]

NARRATIVE: CASE EVENT DATE: 20241001
